FAERS Safety Report 5121623-0 (Version None)
Quarter: 2006Q4

REPORT INFORMATION
  Report Type: 
  Country: None (occurrence: None)
  Receive Date: 20061006
  Receipt Date: 20060724
  Transmission Date: 20070319
  Serious: No
  Sender: FDA-Public Use
  Company Number: JP-AVENTIS-200617697GDDC

PATIENT
  Age: 56 Year
  Sex: Female

DRUGS (5)
  1. RIFADIN [Suspect]
     Indication: TUBERCULOSIS
     Route: 048
     Dates: start: 20050711, end: 20051031
  2. ISCOTIN [Concomitant]
     Route: 048
  3. ISCOTIN [Concomitant]
     Route: 048
     Dates: start: 20060227
  4. ESANBUTOL [Concomitant]
     Route: 048
     Dates: start: 20050711, end: 20051031
  5. ESANBUTOL [Concomitant]
     Route: 048
     Dates: start: 20060227

REACTIONS (1)
  - HYPOTHYROIDISM [None]
